FAERS Safety Report 8078668-0 (Version None)
Quarter: 2012Q1

REPORT INFORMATION
  Report Type: 
  Country: None (occurrence: None)
  Receive Date: 20120127
  Receipt Date: 20110107
  Transmission Date: 20120608
  Serious: No
  Sender: FDA-Public Use
  Company Number: US-ABBOTT-11P-163-0696311-00

PATIENT
  Sex: Male
  Weight: 75.364 kg

DRUGS (7)
  1. IRON INFUSION [Concomitant]
     Indication: BLOOD IRON DECREASED
  2. HUMIRA [Suspect]
     Indication: CROHN'S DISEASE
     Dates: start: 20080101
  3. MORPHINE SULFATE [Concomitant]
     Indication: CROHN'S DISEASE
  4. LYRICA [Concomitant]
     Indication: CROHN'S DISEASE
  5. AMITRIPTYLINE HCL [Concomitant]
     Indication: INSOMNIA
  6. MORPHINE [Concomitant]
     Indication: CROHN'S DISEASE
  7. METHADONE HCL [Concomitant]
     Indication: CROHN'S DISEASE

REACTIONS (14)
  - JOINT SWELLING [None]
  - BLOOD CALCIUM DECREASED [None]
  - ABDOMINAL DISTENSION [None]
  - PRURITUS GENERALISED [None]
  - ABDOMINAL PAIN [None]
  - CROHN'S DISEASE [None]
  - RASH [None]
  - HEADACHE [None]
  - DISCOMFORT [None]
  - MALAISE [None]
  - DRUG EFFECT DECREASED [None]
  - ARTHRALGIA [None]
  - NAUSEA [None]
  - WEIGHT INCREASED [None]
